FAERS Safety Report 7537230-6 (Version None)
Quarter: 2011Q2

REPORT INFORMATION
  Report Type: 
  Country: None (occurrence: None)
  Receive Date: 20110603
  Receipt Date: 20110518
  Transmission Date: 20111010
  Serious: Yes (Hospitalization, Other)
  Sender: FDA-Public Use
  Company Number: 2011MA006062

PATIENT
  Age: 50 Year
  Sex: Male

DRUGS (8)
  1. SULFATRIM [Suspect]
     Indication: ANTIBIOTIC PROPHYLAXIS
  2. CYCLOPHOSPHAMIDE [Concomitant]
  3. VINCRISTINE [Concomitant]
  4. AZITHROMYCIN [Concomitant]
  5. FLUCONAZOLE [Concomitant]
  6. DOXORUBICIN HCL [Concomitant]
  7. ACYCLOVIR [Concomitant]
  8. PREDNISOLONE [Concomitant]

REACTIONS (11)
  - ATAXIA [None]
  - FEBRILE NEUTROPENIA [None]
  - ESCHAR [None]
  - CYTOMEGALOVIRUS MYELOMENINGORADICULITIS [None]
  - DIARRHOEA [None]
  - AREFLEXIA [None]
  - MYCOBACTERIUM AVIUM COMPLEX INFECTION [None]
  - PNEUMONIA CYTOMEGALOVIRAL [None]
  - VITREOUS FLOATERS [None]
  - CYTOMEGALOVIRUS CHORIORETINITIS [None]
  - NEUTROPENIC SEPSIS [None]
